FAERS Safety Report 14134426 (Version 1)
Quarter: 2017Q4

REPORT INFORMATION
  Report Type: Spontaneous
  Country: US (occurrence: US)
  Receive Date: 20171026
  Receipt Date: 20171026
  Transmission Date: 20180321
  Serious: Yes (Other)
  Sender: FDA-Public Use
  Company Number: US-TESARO, INC-US-2017TSO03085

PATIENT

DRUGS (2)
  1. ZEJULA [Suspect]
     Active Substance: NIRAPARIB
     Dosage: 200 MG, QD
     Route: 048
     Dates: start: 20140925
  2. ZEJULA [Suspect]
     Active Substance: NIRAPARIB
     Indication: OVARIAN CANCER STAGE II
     Dosage: 300 MG, QD
     Route: 065
     Dates: start: 20170831, end: 201709

REACTIONS (4)
  - Nausea [Unknown]
  - Blood creatinine increased [Unknown]
  - Vomiting [Unknown]
  - Thrombocytopenia [Unknown]
